FAERS Safety Report 5872503-4 (Version None)
Quarter: 2008Q3

REPORT INFORMATION
  Report Type: 
  Country: None (occurrence: None)
  Receive Date: 20080905
  Receipt Date: 20080827
  Transmission Date: 20090109
  Serious: Yes (Hospitalization)
  Sender: FDA-Public Use
  Company Number: BE-AMGEN-UK289858

PATIENT
  Sex: Female

DRUGS (29)
  1. PANITUMUMAB [Suspect]
     Indication: SQUAMOUS CELL CARCINOMA
     Route: 042
     Dates: start: 20080522
  2. BISOPROLOL FUMARATE [Concomitant]
     Dates: start: 20070501
  3. MICARDIS [Concomitant]
     Dates: start: 20080501
  4. ALPRAZOLAM [Concomitant]
     Dates: start: 20080515
  5. ZANTAC [Concomitant]
     Route: 048
     Dates: start: 20080524
  6. LYSOMUCIL [Concomitant]
     Dates: start: 20080524
  7. CORSODYL [Concomitant]
     Dates: start: 20080516
  8. DUOVENT [Concomitant]
     Dates: start: 20080524
  9. MEDROL [Concomitant]
     Dates: start: 20080521
  10. EMEND [Concomitant]
     Route: 048
     Dates: start: 20080522
  11. ZOFRAN [Concomitant]
     Route: 042
     Dates: start: 20080522, end: 20080522
  12. PRIMPERAN INJ [Concomitant]
     Dates: start: 20080526, end: 20080526
  13. RIOPAN [Concomitant]
     Route: 048
     Dates: start: 20080526
  14. LITICAN [Concomitant]
     Route: 042
     Dates: start: 20080528
  15. CIPROFLOXACIN [Concomitant]
     Dates: start: 20080526
  16. CEDOCARD [Concomitant]
     Route: 060
     Dates: start: 20080528, end: 20080528
  17. GLAZIDIM [Concomitant]
     Route: 042
     Dates: start: 20080602
  18. MOLSIDOMINE [Concomitant]
     Route: 048
     Dates: start: 20080530
  19. ACETYLSALICYLIC ACID SRT [Concomitant]
     Route: 048
     Dates: start: 20080528
  20. ZOCOR [Concomitant]
     Route: 048
     Dates: start: 20080530
  21. MOVICOL [Concomitant]
     Route: 048
     Dates: start: 20080515
  22. FRAXIPARINE [Concomitant]
     Route: 058
     Dates: start: 20080528
  23. OMEPRAZOLE [Concomitant]
     Route: 048
     Dates: start: 20080620
  24. MOTILIUM [Concomitant]
     Route: 048
     Dates: start: 20080620
  25. LASIX [Concomitant]
  26. MINOCYCLINE HCL [Concomitant]
  27. METRONIDAZOLE [Concomitant]
  28. DAFALGAN [Concomitant]
  29. DIFLUCAN [Concomitant]

REACTIONS (1)
  - HYPOTENSION [None]
